FAERS Safety Report 20188245 (Version 1)
Quarter: 2021Q4

REPORT INFORMATION
  Report Type: Spontaneous
  Country: TW (occurrence: TW)
  Receive Date: 20211215
  Receipt Date: 20211215
  Transmission Date: 20220303
  Serious: Yes (Death, Hospitalization, Other)
  Sender: FDA-Public Use
  Company Number: TW-SLATE RUN PHARMACEUTICALS-21TW000833

PATIENT

DRUGS (11)
  1. METHOCARBAMOL [Suspect]
     Active Substance: METHOCARBAMOL
     Indication: Back pain
     Dosage: UNK
  2. CELECOXIB [Concomitant]
     Active Substance: CELECOXIB
     Indication: Back pain
  3. CEFAZOLIN [Concomitant]
     Active Substance: CEFAZOLIN
     Indication: Back pain
  4. CLINDAMYCIN [Concomitant]
     Active Substance: CLINDAMYCIN
     Indication: Back pain
  5. MORPHINE [Concomitant]
     Active Substance: MORPHINE
     Indication: Back pain
  6. TRAMADOL [Concomitant]
     Active Substance: TRAMADOL
     Indication: Back pain
  7. MAGNESIUM SULFATE [Concomitant]
     Active Substance: MAGNESIUM SULFATE
     Indication: Nervous system disorder prophylaxis
     Dosage: 4 GRAM
     Route: 042
  8. BETAMETHASONE [Concomitant]
     Active Substance: BETAMETHASONE
     Indication: Maternal therapy to enhance foetal lung maturity
     Dosage: 12 MILLIGRAM, SINGLE
     Route: 030
  9. DINOPROSTONE [Concomitant]
     Active Substance: DINOPROSTONE
     Indication: Induced labour
     Route: 067
  10. OXYTOCIN [Concomitant]
     Active Substance: OXYTOCIN
     Indication: Induced labour
     Route: 042
  11. UNSPECIFIED INGREDIENT [Concomitant]
     Active Substance: UNSPECIFIED INGREDIENT
     Indication: Delivery
     Route: 008

REACTIONS (16)
  - Multiple organ dysfunction syndrome [Fatal]
  - Back pain [Not Recovered/Not Resolved]
  - Leukocytosis [Unknown]
  - Thrombocytopenia [Unknown]
  - Renal impairment [Unknown]
  - Rectosigmoid cancer [Unknown]
  - Metastases to liver [Unknown]
  - Pleural effusion [Unknown]
  - Ascites [Unknown]
  - Metastases to peritoneum [Unknown]
  - Cyanosis [Unknown]
  - Oliguria [Unknown]
  - Choriocarcinoma [Unknown]
  - Ileus [Unknown]
  - Thrombosis [Unknown]
  - Maternal exposure during pregnancy [Recovered/Resolved]
